FAERS Safety Report 6645459-4 (Version None)
Quarter: 2010Q1

REPORT INFORMATION
  Report Type: 
  Country: None (occurrence: None)
  Receive Date: 20100322
  Receipt Date: 20100311
  Transmission Date: 20100710
  Serious: Yes (Hospitalization)
  Sender: FDA-Public Use
  Company Number: JP-ASTRAZENECA-2009SE33727

PATIENT
  Age: 1008 Month
  Sex: Female
  Weight: 47 kg

DRUGS (4)
  1. IRESSA [Suspect]
     Indication: LUNG ADENOCARCINOMA
     Route: 048
     Dates: start: 20050929, end: 20090701
  2. ALDACTONE [Concomitant]
     Indication: OEDEMA
     Route: 048
     Dates: start: 20051004, end: 20090826
  3. LAC-B [Concomitant]
     Indication: DIARRHOEA
     Route: 048
     Dates: start: 20071112, end: 20090911
  4. LANSOPRAZOLE [Concomitant]
     Indication: REFLUX OESOPHAGITIS
     Route: 048
     Dates: start: 20090121, end: 20090925

REACTIONS (3)
  - DIARRHOEA [None]
  - HYPOCALCAEMIA [None]
  - HYPOMAGNESAEMIA [None]
